FAERS Safety Report 10197452 (Version 1)
Quarter: 2014Q2

REPORT INFORMATION
  Report Type: Spontaneous
  Country: US (occurrence: US)
  Receive Date: 20140527
  Receipt Date: 20140527
  Transmission Date: 20141212
  Serious: Yes (Hospitalization, Other)
  Sender: FDA-Public Use
  Company Number: US-BAXTER-2014BAX025906

PATIENT
  Sex: Female

DRUGS (1)
  1. DIANEAL LOW CALCIUM [Suspect]
     Indication: PERITONEAL DIALYSIS
     Route: 033

REACTIONS (5)
  - Impaired gastric emptying [Unknown]
  - Adverse drug reaction [Recovering/Resolving]
  - Hypoaesthesia oral [Recovering/Resolving]
  - Convulsion [Recovering/Resolving]
  - Hypoaesthesia [Recovering/Resolving]
